FAERS Safety Report 4378618-4 (Version None)
Quarter: 2004Q2

REPORT INFORMATION
  Report Type: 
  Country: None (occurrence: None)
  Receive Date: 20040609
  Receipt Date: 20040524
  Transmission Date: 20050107
  Serious: Yes (Other)
  Sender: FDA-Public Use
  Company Number: 2004-DE-03030GD

PATIENT
  Age: 52 Year
  Sex: Female

DRUGS (3)
  1. MEXILETINE (MEXILETINE HYDROCHLORIDE) (NR) (MEXILETINE-HCL) [Suspect]
     Indication: PHANTOM PAIN
     Dosage: PO
     Route: 048
  2. DIPYRONE TAB [Suspect]
     Indication: PHANTOM PAIN
     Dosage: PO
     Route: 048
  3. MORPHINE [Suspect]
     Indication: PHANTOM PAIN

REACTIONS (1)
  - DRUG INEFFECTIVE [None]
